FAERS Safety Report 9399014 (Version 3)
Quarter: 2014Q1

REPORT INFORMATION
  Report Type: Spontaneous
  Country: IT (occurrence: IT)
  Receive Date: 20130714
  Receipt Date: 20140228
  Transmission Date: 20141002
  Serious: Yes (Other)
  Sender: FDA-Public Use
  Company Number: IT-JNJFOC-20130707324

PATIENT
  Sex: Female

DRUGS (1)
  1. ACTIFED [Suspect]
     Indication: RHINITIS
     Dosage: INITIATED SINCE 10 YEARS, ABOUT 2 PACKS A WEEK.
     Route: 045
     Dates: start: 20030101

REACTIONS (3)
  - Drug dependence [Unknown]
  - Drug abuse [Unknown]
  - Incorrect drug administration duration [Unknown]
